FAERS Safety Report 9171374 (Version 3)
Quarter: 2013Q2

REPORT INFORMATION
  Report Type: Report from Study
  Country: AU (occurrence: AU)
  Receive Date: 20130319
  Receipt Date: 20130408
  Transmission Date: 20140414
  Serious: Yes (Other)
  Sender: FDA-Public Use
  Company Number: AU-ROCHE-1203154

PATIENT
  Age: 63 Year
  Sex: Male

DRUGS (2)
  1. VEMURAFENIB [Suspect]
     Indication: MALIGNANT MELANOMA
     Route: 048
     Dates: start: 20121218
  2. VEMURAFENIB [Suspect]
     Route: 048
     Dates: start: 20130118

REACTIONS (1)
  - Lentigo maligna [Recovered/Resolved]
